FAERS Safety Report 9390094 (Version 1)
Quarter: 2013Q3

REPORT INFORMATION
  Report Type: Spontaneous
  Country: US (occurrence: US)
  Receive Date: 20130708
  Receipt Date: 20130708
  Transmission Date: 20140515
  Serious: No
  Sender: FDA-Public Use
  Company Number: US-AMGEN-USASP2012058028

PATIENT
  Age: 8 Month
  Sex: Male

DRUGS (3)
  1. ENBREL [Suspect]
     Dosage: 50 MG, QWK
     Route: 063
     Dates: start: 20110809, end: 20120913
  2. PRENATAL VITAMINS                  /02014401/ [Concomitant]
     Dosage: UNK UNK, QD
     Route: 064
  3. VITAMINS NOS [Concomitant]
     Dosage: UNK

REACTIONS (4)
  - Pyrexia [Unknown]
  - Hypersensitivity [Unknown]
  - Ear infection [Unknown]
  - Upper respiratory tract infection [Unknown]
